FAERS Safety Report 17941542 (Version 1)
Quarter: 2020Q2

REPORT INFORMATION
  Report Type: Spontaneous
  Country: DE (occurrence: DE)
  Receive Date: 20200624
  Receipt Date: 20200624
  Transmission Date: 20200714
  Serious: Yes (Hospitalization, Other)
  Sender: FDA-Public Use
  Company Number: DE-GILEAD-2020-0469366

PATIENT
  Age: 55 Year
  Sex: Male

DRUGS (3)
  1. EPCLUSA [Suspect]
     Active Substance: SOFOSBUVIR\VELPATASVIR
     Indication: PRODUCT USED FOR UNKNOWN INDICATION
     Dosage: 1 DOSAGE FORM, QD
     Route: 065
  2. METHADONE HYDROCHLORIDE. [Concomitant]
     Active Substance: METHADONE HYDROCHLORIDE
  3. OLANZAPIN 1A PHARMA [Concomitant]
     Active Substance: OLANZAPINE

REACTIONS (4)
  - Psychotic disorder [Unknown]
  - Derailment [Unknown]
  - Drug dependence [Unknown]
  - Confusional state [Unknown]

NARRATIVE: CASE EVENT DATE: 20200401
